FAERS Safety Report 10181130 (Version 1)
Quarter: 2014Q2

REPORT INFORMATION
  Report Type: Spontaneous
  Country: US (occurrence: US)
  Receive Date: 20140519
  Receipt Date: 20140519
  Transmission Date: 20141212
  Serious: No
  Sender: FDA-Public Use
  Company Number: US-AMGEN INC.-USASP2014027467

PATIENT
  Age: 81 Year
  Sex: Female

DRUGS (4)
  1. PROLIA [Suspect]
     Indication: OSTEOPOROSIS POSTMENOPAUSAL
     Dosage: UNK UNK, Q6MO
     Route: 065
  2. VITAMIN D                          /00107901/ [Concomitant]
  3. CALCIUM [Concomitant]
  4. VITAMINS                           /00067501/ [Concomitant]

REACTIONS (4)
  - Dysphonia [Unknown]
  - Decreased appetite [Unknown]
  - Drug ineffective [Unknown]
  - Urinary tract infection [Unknown]
